FAERS Safety Report 5648521-8 (Version None)
Quarter: 2008Q1

REPORT INFORMATION
  Report Type: 
  Country: None (occurrence: None)
  Receive Date: 20080304
  Receipt Date: 20080225
  Transmission Date: 20080703
  Serious: Yes (Hospitalization)
  Sender: FDA-Public Use
  Company Number: CA-ASTRAZENECA-2008UW02824

PATIENT
  Age: 22878 Day
  Sex: Male
  Weight: 100 kg

DRUGS (6)
  1. CRESTOR [Suspect]
     Indication: HYPERCHOLESTEROLAEMIA
     Route: 048
     Dates: start: 20071221
  2. APO-GLYBURIDE [Concomitant]
     Indication: DIABETES MELLITUS
     Route: 048
     Dates: start: 20070803
  3. PANTOPRAZOLE SODIUM [Concomitant]
     Indication: STOMACH DISCOMFORT
     Route: 048
     Dates: start: 20071026
  4. CENTRUM FORTE [Concomitant]
     Indication: SUPPLEMENTATION THERAPY
     Route: 048
     Dates: start: 20071026
  5. ASADOL [Concomitant]
     Indication: ANTICOAGULANT THERAPY
     Route: 048
     Dates: start: 20071026
  6. RIVA-AMIODARONE [Concomitant]
     Indication: CARDIAC DISORDER
     Route: 048
     Dates: start: 20071026

REACTIONS (6)
  - ABDOMINAL HERNIA REPAIR [None]
  - ABDOMINAL PAIN LOWER [None]
  - DIZZINESS [None]
  - HYPERHIDROSIS [None]
  - NAUSEA [None]
  - VOMITING [None]
